FAERS Safety Report 14689013 (Version 1)
Quarter: 2018Q1

REPORT INFORMATION
  Report Type: Spontaneous
  Country: DE (occurrence: DE)
  Receive Date: 20180328
  Receipt Date: 20180328
  Transmission Date: 20180509
  Serious: Yes (Other)
  Sender: FDA-Public Use
  Company Number: DE-GLAXOSMITHKLINE-DE2018048180

PATIENT
  Age: 58 Year
  Sex: Female
  Weight: 65 kg

DRUGS (3)
  1. ACICLOVIR [Suspect]
     Active Substance: ACYCLOVIR
     Dosage: UNK
     Route: 048
  2. ACICLOVIR [Suspect]
     Active Substance: ACYCLOVIR
     Indication: GENITAL HERPES
     Dosage: 5 TABLETS DAILY
     Route: 048
     Dates: start: 20171111
  3. OXIS [Concomitant]
     Active Substance: FORMOTEROL FUMARATE
     Indication: ASTHMA
     Dosage: IF NECESSARY
     Route: 065

REACTIONS (3)
  - Diarrhoea haemorrhagic [Recovered/Resolved]
  - Colitis ulcerative [Not Recovered/Not Resolved]
  - Diarrhoea haemorrhagic [Recovered/Resolved]

NARRATIVE: CASE EVENT DATE: 20171115
